FAERS Safety Report 13319506 (Version 3)
Quarter: 2017Q1

REPORT INFORMATION
  Report Type: Spontaneous
  Country: FR (occurrence: FR)
  Receive Date: 20170310
  Receipt Date: 20170321
  Transmission Date: 20170428
  Serious: Yes (Other)
  Sender: FDA-Public Use
  Company Number: FR-ASTRAZENECA-2017SE24378

PATIENT
  Age: 24574 Day
  Sex: Female

DRUGS (1)
  1. MOPRAL [Suspect]
     Active Substance: OMEPRAZOLE SODIUM
     Indication: GASTROOESOPHAGEAL REFLUX DISEASE
     Route: 048
     Dates: start: 20170227, end: 20170301

REACTIONS (11)
  - Laryngitis [Not Recovered/Not Resolved]
  - Visual acuity reduced [Recovered/Resolved]
  - Adverse reaction [Unknown]
  - Wheezing [Recovered/Resolved]
  - Bronchospasm [Unknown]
  - Hypersensitivity [Unknown]
  - Suffocation feeling [Unknown]
  - Vertigo [Recovered/Resolved]
  - Sleep disorder [Unknown]
  - Diarrhoea [Recovered/Resolved]
  - Swollen tongue [Not Recovered/Not Resolved]

NARRATIVE: CASE EVENT DATE: 20170301
